FAERS Safety Report 7629309-5 (Version None)
Quarter: 2011Q3

REPORT INFORMATION
  Report Type: 
  Country: None (occurrence: None)
  Receive Date: 20110722
  Receipt Date: 20110629
  Transmission Date: 20111222
  Serious: No
  Sender: FDA-Public Use
  Company Number: US-B.I. PHARMACEUTICALS,INC./RIDGEFIELD-2011-BP-15420BP

PATIENT
  Sex: Female

DRUGS (2)
  1. CELEXA [Concomitant]
     Indication: ANXIETY
  2. ZANTAC 150 [Suspect]
     Indication: DYSPEPSIA
     Dosage: 150 MG
     Route: 048
     Dates: start: 20110612

REACTIONS (4)
  - PRURITUS [None]
  - URTICARIA [None]
  - RASH [None]
  - ADVERSE DRUG REACTION [None]
